FAERS Safety Report 9351585 (Version 1)
Quarter: 2013Q2

REPORT INFORMATION
  Report Type: Other
  Country: JP (occurrence: JP)
  Receive Date: 20130617
  Receipt Date: 20130617
  Transmission Date: 20140414
  Serious: Yes (Other)
  Sender: FDA-Public Use
  Company Number: JP-BRISTOL-MYERS SQUIBB COMPANY-19014588

PATIENT
  Age: 70 Year
  Sex: Male

DRUGS (6)
  1. TAXOL [Suspect]
     Indication: GASTRIC CANCER
  2. TS-1 [Suspect]
     Indication: GASTRIC CANCER
     Dates: start: 201012
  3. CPT-11 [Suspect]
     Indication: GASTRIC CANCER
     Dates: start: 201003, end: 201012
  4. CDDP [Suspect]
     Indication: GASTRIC CANCER
     Dates: start: 201003, end: 201012
  5. UFT [Suspect]
     Indication: GASTRIC CANCER
     Route: 048
     Dates: start: 200907, end: 200912
  6. DOCETAXEL [Suspect]
     Indication: GASTRIC CANCER
     Dates: start: 201012

REACTIONS (1)
  - Acute myeloid leukaemia [Unknown]
